FAERS Safety Report 7158345-0 (Version None)
Quarter: 2010Q4

REPORT INFORMATION
  Report Type: 
  Country: None (occurrence: None)
  Receive Date: 20101214
  Receipt Date: 20100226
  Transmission Date: 20110411
  Serious: Yes (Other)
  Sender: FDA-Public Use
  Company Number: US-PFIZER INC-2010026205

PATIENT
  Sex: Female

DRUGS (1)
  1. ARTHROTEC [Suspect]

REACTIONS (2)
  - GASTROINTESTINAL DISORDER [None]
  - VISION BLURRED [None]
